FAERS Safety Report 25709963 (Version 1)
Quarter: 2025Q3

REPORT INFORMATION
  Report Type: Spontaneous
  Country: US (occurrence: None)
  Receive Date: 20250820
  Receipt Date: 20250820
  Transmission Date: 20251021
  Serious: Yes (Other)
  Sender: FDA-CTU
  Company Number: None

PATIENT
  Age: 64 Year
  Sex: Female

DRUGS (2)
  1. KESIMPTA [Suspect]
     Active Substance: OFATUMUMAB
     Dosage: 20MG MONTHLY?
  2. KEPPRA [Suspect]
     Active Substance: LEVETIRACETAM

REACTIONS (3)
  - Pyrexia [None]
  - Therapy cessation [None]
  - Drug hypersensitivity [None]
